FAERS Safety Report 5754309-X (Version None)
Quarter: 2008Q2

REPORT INFORMATION
  Report Type: 
  Country: None (occurrence: None)
  Receive Date: 20080530
  Receipt Date: 20080521
  Transmission Date: 20081010
  Serious: Yes (Other)
  Sender: FDA-Public Use
  Company Number: US-PFIZER INC-2008001429

PATIENT
  Sex: Female

DRUGS (5)
  1. LIPITOR [Suspect]
     Indication: HYPERLIPIDAEMIA
     Dosage: DAILY DOSE:10MG
  2. K-DUR [Concomitant]
     Route: 048
  3. HYZAAR [Concomitant]
     Route: 048
  4. TOPROL-XL [Concomitant]
     Route: 048
  5. SYNTHROID [Concomitant]
     Route: 048

REACTIONS (12)
  - AMNESIA [None]
  - ASTHENIA [None]
  - BALANCE DISORDER [None]
  - COGNITIVE DISORDER [None]
  - CONFUSIONAL STATE [None]
  - DEPRESSION [None]
  - DYSARTHRIA [None]
  - DYSPHASIA [None]
  - FATIGUE [None]
  - HOSTILITY [None]
  - IRRITABILITY [None]
  - NEUROPATHY PERIPHERAL [None]
